FAERS Safety Report 17106519 (Version 4)
Quarter: 2021Q2

REPORT INFORMATION
  Report Type: Spontaneous
  Country: US (occurrence: US)
  Receive Date: 20191203
  Receipt Date: 20210622
  Transmission Date: 20210716
  Serious: No
  Sender: FDA-Public Use
  Company Number: US-PFIZER INC-2017371636

PATIENT
  Age: 50 Year
  Sex: Female
  Weight: 60.32 kg

DRUGS (6)
  1. ARIMIDEX [Concomitant]
     Active Substance: ANASTROZOLE
     Dosage: UNK
  2. PRISTIQ EXTENDED?RELEASE [Suspect]
     Active Substance: DESVENLAFAXINE SUCCINATE
     Indication: DEPRESSION
     Dosage: 150 MG, DAILY (50 MG, 3 TABLETS PER DAY)
     Route: 048
  3. TYLENOL [Concomitant]
     Active Substance: ACETAMINOPHEN
     Dosage: UNK
  4. PRISTIQ EXTENDED?RELEASE [Suspect]
     Active Substance: DESVENLAFAXINE SUCCINATE
     Dosage: 150 MG, DAILY (3 TABLETS OF 50 MG, ONCE DAILY)
     Route: 048
  5. PRISTIQ EXTENDED?RELEASE [Suspect]
     Active Substance: DESVENLAFAXINE SUCCINATE
     Dosage: 100 MG, DAILY
     Dates: start: 20170601
  6. ZANTAC [Concomitant]
     Active Substance: RANITIDINE HYDROCHLORIDE
     Dosage: UNK

REACTIONS (7)
  - Hot flush [Unknown]
  - Arthralgia [Unknown]
  - Muscle strain [Recovering/Resolving]
  - Myalgia [Unknown]
  - Hypoaesthesia [Unknown]
  - Weight loss poor [Unknown]
  - Arthropathy [Unknown]
